FAERS Safety Report 17748619 (Version 3)
Quarter: 2022Q2

REPORT INFORMATION
  Report Type: Spontaneous
  Country: US (occurrence: None)
  Receive Date: 20200505
  Receipt Date: 20220426
  Transmission Date: 20220721
  Serious: No
  Sender: FDA-Public Use
  Company Number: US-ROCHE-2462994

PATIENT
  Age: 58 Year
  Sex: Male

DRUGS (1)
  1. ESBRIET [Suspect]
     Active Substance: PIRFENIDONE
     Indication: Idiopathic pulmonary fibrosis
     Dosage: ON 25/JUN/2017 AND 30/MAY/2019 HE RECEIVED 801 MG DOSE OF PIRFENIDONE
     Route: 048
     Dates: start: 20170623

REACTIONS (5)
  - Abdominal pain upper [Unknown]
  - Constipation [Unknown]
  - Weight increased [Unknown]
  - Hunger [Unknown]
  - Abdominal pain [Unknown]

NARRATIVE: CASE EVENT DATE: 20200105
